FAERS Safety Report 19943484 (Version 1)
Quarter: 2021Q4

REPORT INFORMATION
  Report Type: Spontaneous
  Country: US (occurrence: US)
  Receive Date: 20211008
  Receipt Date: 20211008
  Transmission Date: 20220303
  Serious: Yes (Life-Threatening)
  Sender: FDA-Public Use
  Company Number: None

PATIENT
  Age: 74 Year
  Sex: Female
  Weight: 58 kg

DRUGS (6)
  1. PERTUZUMAB [Suspect]
     Active Substance: PERTUZUMAB
     Indication: Invasive breast carcinoma
     Dosage: OTHER FREQUENCY:ONCE;
     Route: 042
     Dates: start: 20210602, end: 20210602
  2. PACLITAXEL [Concomitant]
     Active Substance: PACLITAXEL
     Dates: start: 20210602, end: 20210602
  3. DIPHENHYDRAMINE HYDROCHLORIDE [Concomitant]
     Active Substance: DIPHENHYDRAMINE HYDROCHLORIDE
     Dates: start: 20210602, end: 20210602
  4. FOSAPREPITANT [Concomitant]
     Active Substance: FOSAPREPITANT
     Dates: start: 20210602, end: 20210602
  5. DEXAMETHASONE [Concomitant]
     Active Substance: DEXAMETHASONE
     Dates: start: 20210602, end: 20210602
  6. FAMOTIDINE [Concomitant]
     Active Substance: FAMOTIDINE
     Dates: start: 20210602, end: 20210602

REACTIONS (4)
  - Cardio-respiratory arrest [None]
  - Pulseless electrical activity [None]
  - Dehydration [None]
  - Asthenia [None]

NARRATIVE: CASE EVENT DATE: 20210602
